FAERS Safety Report 8215398-6 (Version None)
Quarter: 2012Q1

REPORT INFORMATION
  Report Type: 
  Country: None (occurrence: None)
  Receive Date: 20120316
  Receipt Date: 20120305
  Transmission Date: 20120608
  Serious: Yes (Hospitalization, Other)
  Sender: FDA-Public Use
  Company Number: PL-AMGEN-POLSP2012015759

PATIENT
  Age: 39 Year
  Sex: Male
  Weight: 76 kg

DRUGS (4)
  1. ENBREL [Suspect]
     Indication: PRODUCT USED FOR UNKNOWN INDICATION
     Dosage: 50 MG, WEEKLY
     Dates: start: 20110909, end: 20120127
  2. BISOPROLOL FUMARATE [Concomitant]
     Dosage: UNK
  3. INDAPAMIDE [Concomitant]
     Dosage: UNK
  4. OLFEN                              /00372302/ [Concomitant]
     Dosage: UNK

REACTIONS (1)
  - POLYCYTHAEMIA [None]
